FAERS Safety Report 7264910-2 (Version None)
Quarter: 2011Q1

REPORT INFORMATION
  Report Type: 
  Country: None (occurrence: None)
  Receive Date: 20110131
  Receipt Date: 20101130
  Transmission Date: 20110831
  Serious: Yes (Other)
  Sender: FDA-Public Use
  Company Number: US-BAYER-201036730NA

PATIENT
  Sex: Male

DRUGS (16)
  1. MORPHINE SULFATE [Concomitant]
     Indication: PAIN
     Dosage: 30 MG, UNK
  2. MAGNEVIST [Suspect]
     Dosage: 20 ML, UNK
     Dates: start: 20060524, end: 20060524
  3. OMNISCAN [Suspect]
     Indication: NUCLEAR MAGNETIC RESONANCE IMAGING
  4. OXYCONTIN [Concomitant]
     Indication: PAIN
     Dosage: 320 MG, QID
  5. DILAUDID [Concomitant]
     Indication: PAIN
     Dosage: 8 MG, 5ID
  6. ASCORBIC ACID [Concomitant]
  7. OMNIPAQUE 140 [Concomitant]
     Indication: COMPUTERISED TOMOGRAM ABDOMEN
     Dosage: 80 ML, UNK
     Dates: start: 20091127
  8. OPTIMARK [Suspect]
     Indication: NUCLEAR MAGNETIC RESONANCE IMAGING
  9. OXYCODONE [Concomitant]
     Indication: PAIN
  10. METHADONE [Concomitant]
     Indication: PAIN
     Dosage: 10 MG, UNK
  11. MAGNEVIST [Suspect]
     Indication: NUCLEAR MAGNETIC RESONANCE IMAGING
     Dosage: 20 ML, UNK
     Dates: start: 20050616, end: 20050616
  12. GABAPENTIN [Concomitant]
     Indication: NEURALGIA
     Dosage: 400 MG, TID
  13. POTASSIUM [Concomitant]
     Indication: PROPHYLAXIS
  14. MAGNESIUM [Concomitant]
     Indication: GASTROINTESTINAL DISORDER
  15. BACLOFEN [Concomitant]
     Indication: MUSCLE RELAXANT THERAPY
     Dosage: 1/2 TABLET
  16. OMEPRAZOLE [Concomitant]
     Indication: GASTROOESOPHAGEAL REFLUX DISEASE
     Dosage: 20 MG, BID

REACTIONS (12)
  - SKIN SWELLING [None]
  - SKIN HYPERPIGMENTATION [None]
  - SKIN BURNING SENSATION [None]
  - OEDEMA PERIPHERAL [None]
  - JOINT STIFFNESS [None]
  - MYALGIA [None]
  - SKIN INDURATION [None]
  - DEFORMITY [None]
  - PRURITUS [None]
  - NEPHROGENIC SYSTEMIC FIBROSIS [None]
  - GENERAL PHYSICAL HEALTH DETERIORATION [None]
  - SCAR [None]
